FAERS Safety Report 12815116 (Version 1)
Quarter: 2016Q4

REPORT INFORMATION
  Report Type: Report from Study
  Country: US (occurrence: US)
  Receive Date: 20161006
  Receipt Date: 20161006
  Transmission Date: 20170207
  Serious: Yes (Other)
  Sender: FDA-Public Use
  Company Number: US-ROCHE-1837635

PATIENT
  Age: 65 Year
  Sex: Female
  Weight: 48.6 kg

DRUGS (2)
  1. BEVACIZUMAB [Suspect]
     Active Substance: BEVACIZUMAB
     Indication: OVARIAN EPITHELIAL CANCER
     Dosage: OVER 30-90 MINUTES ON DAY 1
     Route: 042
     Dates: start: 20140708
  2. ABT-888 [Suspect]
     Active Substance: VELIPARIB
     Indication: OVARIAN EPITHELIAL CANCER
     Route: 048
     Dates: start: 20140617

REACTIONS (3)
  - Neutrophil count decreased [Unknown]
  - Hypomagnesaemia [Unknown]
  - Anaemia [Unknown]
